FAERS Safety Report 19645616 (Version 1)
Quarter: 2021Q3

REPORT INFORMATION
  Report Type: Spontaneous
  Country: US (occurrence: US)
  Receive Date: 20210731
  Receipt Date: 20210731
  Transmission Date: 20211014
  Serious: Yes (Life-Threatening, Hospitalization)
  Sender: FDA-Public Use
  Company Number: None

PATIENT
  Age: 53 Year
  Sex: Male
  Weight: 64.1 kg

DRUGS (8)
  1. ABECMA HF6C?PC65M?03 [Concomitant]
     Dates: start: 20210726, end: 20210726
  2. ABECMA [Suspect]
     Active Substance: IDECABTAGENE VICLEUCEL
     Indication: PLASMA CELL MYELOMA
     Route: 042
     Dates: start: 20210726, end: 20210726
  3. HF6C?PC65M?01 [Concomitant]
     Dates: start: 20210726, end: 20210726
  4. DEXAMETHASONE. [Concomitant]
     Active Substance: DEXAMETHASONE
     Dates: start: 20210726, end: 20210726
  5. ABECMA HF6C?PC65M?02 [Concomitant]
     Dates: start: 20210726, end: 20210726
  6. TOCILIZUMAB. [Concomitant]
     Active Substance: TOCILIZUMAB
     Dates: start: 20210728, end: 20210728
  7. ABECMA [Suspect]
     Active Substance: IDECABTAGENE VICLEUCEL
     Route: 042
     Dates: start: 20210726, end: 20210726
  8. DEXAMETHASONE. [Concomitant]
     Active Substance: DEXAMETHASONE
     Dates: start: 20210728, end: 20210728

REACTIONS (2)
  - Pyrexia [None]
  - Cytokine release syndrome [None]

NARRATIVE: CASE EVENT DATE: 20210728
